FAERS Safety Report 14337619 (Version 3)
Quarter: 2018Q1

REPORT INFORMATION
  Report Type: Report from Study
  Country: BR (occurrence: BR)
  Receive Date: 20171229
  Receipt Date: 20180116
  Transmission Date: 20180509
  Serious: Yes (Life-Threatening, Other)
  Sender: FDA-Public Use
  Company Number: PHHY2017BR185539

PATIENT
  Age: 28 Year
  Sex: Male
  Weight: 54 kg

DRUGS (7)
  1. OXCARB [Concomitant]
     Indication: PRODUCT USED FOR UNKNOWN INDICATION
     Route: 065
  2. DEPAKOTE [Concomitant]
     Active Substance: DIVALPROEX SODIUM
     Indication: SEIZURE
     Dosage: 3 DF, BID (DISSOLVED CAPSULES, 1 HOUR BEFORE TRILEPTAL) (IT HAS BEEN 7 YEARS)
     Route: 048
  3. TRILEPTAL [Suspect]
     Active Substance: OXCARBAZEPINE
     Indication: SEIZURE
     Dosage: 10 ML, BID (6%) (10 ML INTHE MORNING AND 10 ML AT NIGHT)
     Route: 048
  4. CLONAZEPAM. [Concomitant]
     Active Substance: CLONAZEPAM
     Indication: ANXIETY
     Dosage: 1 DF, QD (IT HAS BEEN 7 YEARS)
     Route: 048
  5. CLONAZEPAM. [Concomitant]
     Active Substance: CLONAZEPAM
     Indication: SLEEP DISORDER
  6. TEGRETOL [Suspect]
     Active Substance: CARBAMAZEPINE
     Indication: SEIZURE
     Dosage: UNK
     Route: 048
  7. URBANIL [Concomitant]
     Active Substance: CLOBAZAM
     Indication: ANXIETY
     Route: 048

REACTIONS (8)
  - Seizure [Not Recovered/Not Resolved]
  - Product availability issue [Not Recovered/Not Resolved]
  - Muscle spasms [Recovered/Resolved]
  - Seizure [Recovered/Resolved]
  - Condition aggravated [Recovered/Resolved]
  - Fall [Recovered/Resolved]
  - Distractibility [Recovered/Resolved]
  - Dysphagia [Unknown]

NARRATIVE: CASE EVENT DATE: 201711
